FAERS Safety Report 26179685 (Version 1)
Quarter: 2025Q4

REPORT INFORMATION
  Report Type: Spontaneous
  Country: US (occurrence: US)
  Receive Date: 20251219
  Receipt Date: 20251219
  Transmission Date: 20260118
  Serious: No
  Sender: BRISTOL-MYERS SQUIBB COMPANY
  Company Number: US-BRISTOL-MYERS SQUIBB COMPANY-2025-170223

PATIENT
  Age: 82 Year
  Sex: Female

DRUGS (1)
  1. POMALYST [Suspect]
     Active Substance: POMALIDOMIDE
     Indication: Neoplasm
     Dosage: TAKE 1 WHOLE CAPSULE BY MOUTH W/WATER EVERY DAY FOR 21 DAYS THEN 7 DAYS OFF. DONOT BREAK, CHEW OR OPEN CAPS.
     Route: 048

REACTIONS (1)
  - Herpes zoster [Recovering/Resolving]
